FAERS Safety Report 24583059 (Version 1)
Quarter: 2024Q4

REPORT INFORMATION
  Report Type: Spontaneous
  Country: US (occurrence: US)
  Receive Date: 20241106
  Receipt Date: 20241106
  Transmission Date: 20250114
  Serious: Yes (Other)
  Sender: DR REDDYS
  Company Number: US-DRL-USA-LIT/USA/24/0016432

PATIENT
  Age: 27 Year
  Sex: Female

DRUGS (3)
  1. METOPROLOL [Suspect]
     Active Substance: METOPROLOL
     Indication: Hypertension
  2. CARVEDILOL [Suspect]
     Active Substance: CARVEDILOL
     Indication: Hypertension
  3. ASPIRIN [Suspect]
     Active Substance: ASPIRIN
     Indication: Hypertension
     Route: 042

REACTIONS (1)
  - Exposure during pregnancy [Unknown]
